FAERS Safety Report 9184603 (Version 1)
Quarter: 2013Q1

REPORT INFORMATION
  Report Type: Spontaneous
  Country: ES (occurrence: ES)
  Receive Date: 20130324
  Receipt Date: 20130324
  Transmission Date: 20140127
  Serious: Yes (Death, Hospitalization)
  Sender: FDA-Public Use
  Company Number: ES-ELI_LILLY_AND_COMPANY-ES201303007455

PATIENT
  Age: 76 None
  Sex: Male
  Weight: 70 kg

DRUGS (2)
  1. FORSTEO [Suspect]
     Indication: OSTEOPOROSIS
     Dosage: 20 UG, QD
     Route: 058
     Dates: start: 20101028, end: 201101
  2. SINTROM [Concomitant]
     Indication: ARRHYTHMIA
     Dosage: UNK, UNKNOWN
     Route: 065
     Dates: end: 201101

REACTIONS (3)
  - Respiratory tract infection [Fatal]
  - Embolism [Unknown]
  - Blood calcium decreased [Not Recovered/Not Resolved]
